FAERS Safety Report 5626938-5 (Version None)
Quarter: 2008Q1

REPORT INFORMATION
  Report Type: 
  Country: None (occurrence: None)
  Receive Date: 20080212
  Receipt Date: 20080201
  Transmission Date: 20080703
  Serious: Yes (Death, Other)
  Sender: FDA-Public Use
  Company Number: MPS1-1000003

PATIENT
  Age: 16 Month
  Sex: Female
  Weight: 11.3 kg

DRUGS (3)
  1. ALDURAZYME [Suspect]
     Indication: MUCOPOLYSACCHARIDOSIS I
     Dosage: 5.8 MG,QW,INTRAVENOUS
     Route: 042
     Dates: start: 20070608, end: 20071022
  2. BENADRYL [Concomitant]
  3. ACETAMINOPHEN [Concomitant]

REACTIONS (4)
  - CARDIAC ARREST [None]
  - CONVULSION [None]
  - MALAISE [None]
  - RESPIRATORY ARREST [None]
